FAERS Safety Report 14786506 (Version 1)
Quarter: 2018Q2

REPORT INFORMATION
  Report Type: Spontaneous
  Country: ES (occurrence: ES)
  Receive Date: 20180420
  Receipt Date: 20180420
  Transmission Date: 20180711
  Serious: Yes (Hospitalization)
  Sender: FDA-Public Use
  Company Number: ES-PFIZER INC-2018157691

PATIENT
  Age: 78 Year
  Sex: Male

DRUGS (1)
  1. PROPOFOL HOSPIRA [Suspect]
     Active Substance: PROPOFOL
     Indication: AGITATION
     Dosage: UNK
     Dates: start: 20180311, end: 20180311

REACTIONS (2)
  - Acute respiratory failure [Unknown]
  - Product use in unapproved indication [Unknown]

NARRATIVE: CASE EVENT DATE: 20180311
